FAERS Safety Report 25317065 (Version 2)
Quarter: 2025Q2

REPORT INFORMATION
  Report Type: Spontaneous
  Country: US (occurrence: None)
  Receive Date: 20250515
  Receipt Date: 20250523
  Transmission Date: 20250717
  Serious: Yes (Disabling)
  Sender: Alvotech
  Company Number: US-ALVOTECHPMS-2025-ALVOTECHPMS-004077

PATIENT
  Age: 42 Year
  Sex: Male

DRUGS (1)
  1. SIMLANDI [Suspect]
     Active Substance: ADALIMUMAB-RYVK
     Indication: Product used for unknown indication

REACTIONS (4)
  - Impaired work ability [Unknown]
  - Inappropriate schedule of product administration [Unknown]
  - Back pain [Not Recovered/Not Resolved]
  - Product dose omission issue [Unknown]
